FAERS Safety Report 16514215 (Version 2)
Quarter: 2019Q3

REPORT INFORMATION
  Report Type: Report from Study
  Country: US (occurrence: US)
  Receive Date: 20190701
  Receipt Date: 20190703
  Transmission Date: 20191004
  Serious: Yes (Death)
  Sender: FDA-Public Use
  Company Number: US-ROCHE-2346277

PATIENT
  Sex: Male

DRUGS (2)
  1. COTELLIC [Suspect]
     Active Substance: COBIMETINIB
     Indication: PANCREATIC CARCINOMA
     Route: 065
  2. COTELLIC [Suspect]
     Active Substance: COBIMETINIB
     Indication: OFF LABEL USE

REACTIONS (3)
  - Intentional product use issue [Unknown]
  - Off label use [Unknown]
  - Death [Fatal]
